FAERS Safety Report 5996336-3 (Version None)
Quarter: 2008Q4

REPORT INFORMATION
  Report Type: 
  Country: None (occurrence: None)
  Receive Date: 20081212
  Receipt Date: 20081015
  Transmission Date: 20090506
  Serious: No
  Sender: FDA-Public Use
  Company Number: US-ABBOTT-08P-163-0481734-00

PATIENT
  Sex: Female
  Weight: 74.91 kg

DRUGS (7)
  1. HUMIRA [Suspect]
     Indication: PSORIATIC ARTHROPATHY
     Route: 058
     Dates: start: 20080721, end: 20080721
  2. HUMIRA [Suspect]
     Indication: RHEUMATOID ARTHRITIS
     Route: 058
     Dates: start: 20080729
  3. ALBUTEROL SULFATE [Concomitant]
     Indication: ASTHMA
     Route: 055
     Dates: start: 19880101
  4. ALPRAZOLAM [Concomitant]
     Indication: ANXIETY
     Route: 048
     Dates: start: 20080501
  5. ALPRAZOLAM [Concomitant]
     Indication: DEPRESSION
  6. ONE A DAY WOMEN MULTIVITAMIN [Concomitant]
     Indication: VITAMIN SUPPLEMENTATION
     Route: 048
     Dates: start: 20050101
  7. CALCIUM [Concomitant]
     Indication: MINERAL SUPPLEMENTATION
     Route: 048
     Dates: start: 20050101

REACTIONS (11)
  - ARTHRALGIA [None]
  - CHILLS [None]
  - COUGH [None]
  - FATIGUE [None]
  - FEELING ABNORMAL [None]
  - HYPERHIDROSIS [None]
  - INJECTION SITE HAEMATOMA [None]
  - JOINT SWELLING [None]
  - PAIN IN EXTREMITY [None]
  - SNEEZING [None]
  - WHEEZING [None]
